FAERS Safety Report 13484581 (Version 1)
Quarter: 2017Q2

REPORT INFORMATION
  Report Type: Spontaneous
  Country: US (occurrence: US)
  Receive Date: 20170425
  Receipt Date: 20170425
  Transmission Date: 20170830
  Serious: No
  Sender: FDA-Public Use
  Company Number: US-009507513-1704USA012185

PATIENT

DRUGS (5)
  1. RISPERIDONE. [Concomitant]
     Active Substance: RISPERIDONE
  2. ADVAIR HFA [Concomitant]
     Active Substance: FLUTICASONE PROPIONATE\SALMETEROL XINAFOATE
  3. ZEPATIER [Suspect]
     Active Substance: ELBASVIR\GRAZOPREVIR
     Indication: HEPATITIS C
     Dosage: DAILY DOSE: 50-100 MG, 1 TABLET BY MOUTH EVERYDAY
     Route: 048
     Dates: start: 201703
  4. SULINDAC. [Concomitant]
     Active Substance: SULINDAC
  5. IPRATROPIUM BROMIDE. [Concomitant]
     Active Substance: IPRATROPIUM BROMIDE

REACTIONS (2)
  - Insomnia [Not Recovered/Not Resolved]
  - Diarrhoea [Recovering/Resolving]
